FAERS Safety Report 16062073 (Version 1)
Quarter: 2019Q1

REPORT INFORMATION
  Report Type: Spontaneous
  Country: HU (occurrence: HU)
  Receive Date: 20190312
  Receipt Date: 20190312
  Transmission Date: 20190418
  Serious: Yes (Other)
  Sender: FDA-Public Use
  Company Number: HU-BAYER-2019-046583

PATIENT
  Age: 18 Year
  Sex: Female

DRUGS (2)
  1. ACETYLSALICYLIC ACID (CARDIO) [Suspect]
     Active Substance: ASPIRIN
  2. PLASMA [Concomitant]
     Active Substance: HUMAN PLASMA

REACTIONS (4)
  - Product use in unapproved indication [None]
  - Headache [None]
  - Off label use [None]
  - Platelet count decreased [None]
